FAERS Safety Report 9844370 (Version 1)
Quarter: 2014Q1

REPORT INFORMATION
  Report Type: Spontaneous
  Country: IT (occurrence: IT)
  Receive Date: 20140127
  Receipt Date: 20140127
  Transmission Date: 20141002
  Serious: Yes (Death)
  Sender: FDA-Public Use
  Company Number: PHHY2014IT007511

PATIENT
  Age: 35 Year
  Sex: Female

DRUGS (9)
  1. CICLOSPORIN [Suspect]
     Indication: PROPHYLAXIS AGAINST GRAFT VERSUS HOST DISEASE
  2. METHOTREXATE [Suspect]
     Indication: PROPHYLAXIS AGAINST GRAFT VERSUS HOST DISEASE
  3. PIPERACILLIN+TAZOBACTAM [Suspect]
  4. AMPHOTERICIN [Concomitant]
     Dosage: 5 MG/KG, PER DAY
  5. POSACONAZOLE [Concomitant]
     Indication: ANTIFUNGAL TREATMENT
     Dosage: 600 MG, PER DAY
  6. AZACITIDINE [Concomitant]
     Dosage: 75 MG/M2, UNK
  7. MEROPENEM [Concomitant]
     Indication: LUNG DISORDER
  8. LEVOFLOXACIN [Concomitant]
     Indication: LUNG DISORDER
  9. LINEZOLID [Concomitant]
     Indication: LUNG DISORDER

REACTIONS (4)
  - Graft versus host disease in liver [Fatal]
  - Graft versus host disease in intestine [Fatal]
  - Acute graft versus host disease in skin [Fatal]
  - Drug ineffective [Unknown]
